FAERS Safety Report 7034930-1 (Version None)
Quarter: 2010Q4

REPORT INFORMATION
  Report Type: 
  Country: None (occurrence: None)
  Receive Date: 20101008
  Receipt Date: 20101001
  Transmission Date: 20110411
  Serious: Yes (Other)
  Sender: FDA-Public Use
  Company Number: DK-ROCHE-730630

PATIENT
  Age: 12 Year
  Sex: Female

DRUGS (1)
  1. ROACTEMRA [Suspect]
     Dosage: FREQUENCY: OTO
     Route: 065

REACTIONS (4)
  - FACE OEDEMA [None]
  - LEUKOCYTOSIS [None]
  - PYREXIA [None]
  - RASH [None]
